FAERS Safety Report 24724676 (Version 1)
Quarter: 2024Q4

REPORT INFORMATION
  Report Type: Spontaneous
  Country: JP (occurrence: JP)
  Receive Date: 20241212
  Receipt Date: 20241212
  Transmission Date: 20250115
  Serious: Yes (Disabling)
  Sender: ABBVIE
  Company Number: JP-ALLERGAN-2026615US

PATIENT
  Age: 71 Year
  Sex: Male

DRUGS (6)
  1. ALPHAGAN P [Suspect]
     Active Substance: BRIMONIDINE TARTRATE
     Indication: Open angle glaucoma
     Route: 047
  2. TAFLUPROST\TIMOLOL [Concomitant]
     Active Substance: TAFLUPROST\TIMOLOL
     Indication: Product used for unknown indication
     Route: 047
     Dates: start: 20150905
  3. AZOPT [Concomitant]
     Active Substance: BRINZOLAMIDE
     Indication: Product used for unknown indication
     Route: 047
     Dates: start: 20160304
  4. RIPASUDIL HYDROCHLORIDE DIHYDRATE [Concomitant]
     Active Substance: RIPASUDIL HYDROCHLORIDE DIHYDRATE
     Indication: Product used for unknown indication
     Route: 047
     Dates: start: 20180901
  5. RINDERON [Concomitant]
     Indication: Keratitis
     Route: 047
  6. HYALURONATE SODIUM [Suspect]
     Active Substance: HYALURONATE SODIUM
     Indication: Product used for unknown indication
     Dosage: OPHTHALMIC SOLUTION 0.1% ^SENJU
     Route: 047

REACTIONS (2)
  - Corneal opacity [Unknown]
  - Corneal oedema [Unknown]
